FAERS Safety Report 6438046-4 (Version None)
Quarter: 2009Q4

REPORT INFORMATION
  Report Type: 
  Country: None (occurrence: None)
  Receive Date: 20091112
  Receipt Date: 20091106
  Transmission Date: 20100525
  Serious: Yes (Other)
  Sender: FDA-Public Use
  Company Number: JP-ABBOTT-09P-087-0607961-00

PATIENT
  Age: 87 Year
  Sex: Male

DRUGS (1)
  1. LEUPLIN SR FOR INJECTION 11.25 MG [Suspect]
     Indication: PROSTATE CANCER
     Route: 058
     Dates: start: 20041126

REACTIONS (3)
  - INJECTION SITE ABSCESS [None]
  - INJECTION SITE INDURATION [None]
  - INJECTION SITE ULCER [None]
